FAERS Safety Report 8212548-2 (Version None)
Quarter: 2012Q1

REPORT INFORMATION
  Report Type: 
  Country: None (occurrence: None)
  Receive Date: 20120229
  Receipt Date: 20111025
  Transmission Date: 20120608
  Serious: Yes (Other)
  Sender: FDA-Public Use
  Company Number: 338390

PATIENT
  Age: 51 Year
  Sex: Male
  Weight: 70.3 kg

DRUGS (2)
  1. NOVOLIN N [Suspect]
     Indication: TYPE 1 DIABETES MELLITUS
     Dosage: 12 U, QD, SUBCUTANEOUS;  15-20 U QD, SUBCUTAN.-PUMP
     Route: 058
     Dates: start: 20111023, end: 20111023
  2. NOVOLIN N [Suspect]
     Indication: TYPE 1 DIABETES MELLITUS
     Dosage: 12 U, QD, SUBCUTANEOUS;  15-20 U QD, SUBCUTAN.-PUMP
     Route: 058
     Dates: start: 20111023, end: 20111023

REACTIONS (6)
  - DYSPNOEA [None]
  - DRUG DISPENSING ERROR [None]
  - HYPERHIDROSIS [None]
  - VOMITING [None]
  - PHARYNGEAL OEDEMA [None]
  - BLOOD GLUCOSE INCREASED [None]
